FAERS Safety Report 4707111-1 (Version None)
Quarter: 2005Q3

REPORT INFORMATION
  Report Type: 
  Country: None (occurrence: None)
  Receive Date: 20050706
  Receipt Date: 20040921
  Transmission Date: 20060218
  Serious: Yes (Hospitalization)
  Sender: FDA-Public Use
  Company Number: US-ROCHE-381236

PATIENT
  Age: 24 Week
  Sex: Male
  Weight: 3.7 kg

DRUGS (1)
  1. ACCUTANE [Suspect]
     Indication: DRUG USE FOR UNKNOWN INDICATION
     Dates: start: 19960615, end: 19960615

REACTIONS (10)
  - BONE SCAN ABNORMAL [None]
  - DEHYDRATION [None]
  - DRUG EXPOSURE DURING PREGNANCY [None]
  - DRUG EXPOSURE VIA BREAST MILK [None]
  - FLATULENCE [None]
  - LIMB HYPOPLASIA CONGENITAL [None]
  - LIVE BIRTH [None]
  - NEONATAL DISORDER [None]
  - UMBILICAL CORD AROUND NECK [None]
  - UNEVALUABLE EVENT [None]
